FAERS Safety Report 6381645-9 (Version None)
Quarter: 2009Q3

REPORT INFORMATION
  Report Type: 
  Country: None (occurrence: None)
  Receive Date: 20090930
  Receipt Date: 20090921
  Transmission Date: 20100115
  Serious: Yes (Hospitalization, Other)
  Sender: FDA-Public Use
  Company Number: US-BIOGENIDEC-2008BI010342

PATIENT
  Sex: Female

DRUGS (1)
  1. AVONEX [Suspect]
     Indication: MULTIPLE SCLEROSIS
     Route: 030
     Dates: start: 20061129, end: 20071214

REACTIONS (6)
  - ANGINA PECTORIS [None]
  - BURNING SENSATION [None]
  - CEREBRAL SARCOIDOSIS [None]
  - CSF PROTEIN INCREASED [None]
  - HYPOAESTHESIA [None]
  - PARAESTHESIA [None]
